FAERS Safety Report 4900052-6 (Version None)
Quarter: 2006Q1

REPORT INFORMATION
  Report Type: 
  Country: None (occurrence: None)
  Receive Date: 20060203
  Receipt Date: 20051129
  Transmission Date: 20060701
  Serious: Yes (Other)
  Sender: FDA-Public Use
  Company Number: JP-BOEHRINGER INGELHEIM PHARMACEUTICALS, INC.-2005-BP-20810NB

PATIENT
  Sex: Female
  Weight: 55 kg

DRUGS (5)
  1. MICARDIS [Suspect]
     Indication: HYPERTENSION
     Route: 048
     Dates: start: 20051031
  2. SOLON [Concomitant]
     Indication: GASTRITIS
     Route: 048
     Dates: start: 20050105
  3. MIYA BM [Concomitant]
     Indication: BOWEL MOVEMENT IRREGULARITY
     Route: 048
     Dates: start: 20041213
  4. LOCHOL (FLUVASTATIN SODIUM) [Concomitant]
     Route: 048
  5. PANALDINE [Concomitant]
     Route: 048

REACTIONS (4)
  - AUTONOMIC NERVOUS SYSTEM IMBALANCE [None]
  - BLOOD PRESSURE DECREASED [None]
  - LOSS OF CONSCIOUSNESS [None]
  - SYNCOPE [None]
